FAERS Safety Report 7295404-6 (Version None)
Quarter: 2011Q1

REPORT INFORMATION
  Report Type: 
  Country: None (occurrence: None)
  Receive Date: 20110203
  Receipt Date: 20110127
  Transmission Date: 20110831
  Serious: Yes (Death, Hospitalization)
  Sender: FDA-Public Use
  Company Number: IDA-00492

PATIENT
  Age: 32 Year
  Sex: Female

DRUGS (2)
  1. CLONAZEPAM [Concomitant]
  2. PROPRANOLOL [Suspect]
     Route: 048

REACTIONS (7)
  - HYPERLACTACIDAEMIA [None]
  - CARDIAC ARREST [None]
  - TOXICITY TO VARIOUS AGENTS [None]
  - SHOCK [None]
  - OVERDOSE [None]
  - MULTI-ORGAN FAILURE [None]
  - CARDIAC FAILURE [None]
